FAERS Safety Report 8960199 (Version 2)
Quarter: 2013Q1

REPORT INFORMATION
  Report Type: Spontaneous
  Country: US (occurrence: US)
  Receive Date: 20121211
  Receipt Date: 20130219
  Transmission Date: 20140127
  Serious: Yes (Other)
  Sender: FDA-Public Use
  Company Number: US-PFIZER INC-2012310432

PATIENT
  Sex: Male

DRUGS (2)
  1. NEURONTIN [Suspect]
     Dosage: UNK
  2. DILANTIN [Suspect]
     Dosage: UNK

REACTIONS (3)
  - Epilepsy [Unknown]
  - Nervous system disorder [Unknown]
  - Agitation [Unknown]
